FAERS Safety Report 15275301 (Version 1)
Quarter: 2018Q3

REPORT INFORMATION
  Report Type: Spontaneous
  Country: US (occurrence: US)
  Receive Date: 20180814
  Receipt Date: 20180814
  Transmission Date: 20181010
  Serious: No
  Sender: FDA-Public Use
  Company Number: US-TEVA-805305USA

PATIENT
  Sex: Female

DRUGS (3)
  1. HYDROCODONE [Concomitant]
     Active Substance: HYDROCODONE
     Route: 065
  2. BACLOFEN. [Suspect]
     Active Substance: BACLOFEN
     Route: 065
  3. BUTRANS [Suspect]
     Active Substance: BUPRENORPHINE
     Indication: PAIN
     Dosage: 5MCG/HR

REACTIONS (5)
  - Cognitive disorder [Unknown]
  - Disturbance in attention [Unknown]
  - Anxiety [Unknown]
  - Coordination abnormal [Unknown]
  - Confusional state [Unknown]
